FAERS Safety Report 8565371-3 (Version None)
Quarter: 2012Q3

REPORT INFORMATION
  Report Type: 
  Country: None (occurrence: None)
  Receive Date: 20120724
  Receipt Date: 20120710
  Transmission Date: 20120928
  Serious: Yes (Hospitalization)
  Sender: FDA-Public Use
  Company Number: DSA_56081_2012

PATIENT
  Sex: Male
  Weight: 202.9 kg

DRUGS (11)
  1. IRBESARTAN [Concomitant]
  2. DOXAZOSIN MESYLATE [Concomitant]
  3. MAGMITT [Concomitant]
  4. PEGAPTANIB SODIUM (PEGAPTANIB SODIUM) [Suspect]
     Indication: DIABETIC RETINAL OEDEMA
     Dosage: 0.3 MG (FOR EACH DOSE)
     Dates: start: 20111220
  5. SITAGLIPTIN PHOSPHATE [Concomitant]
  6. CONIEL [Concomitant]
  7. LYRICA [Concomitant]
  8. AMLODIPINE [Concomitant]
  9. ADJUST-A [Concomitant]
  10. LASIX [Suspect]
     Indication: HYPERTENSION
     Dosage: 40 MG QD ORAL
     Route: 048
     Dates: start: 20110113
  11. CRESTOR [Concomitant]

REACTIONS (10)
  - PO2 DECREASED [None]
  - GLYCOSYLATED HAEMOGLOBIN INCREASED [None]
  - ASPARTATE AMINOTRANSFERASE INCREASED [None]
  - BLOOD PRESSURE DECREASED [None]
  - BLOOD GLUCOSE INCREASED [None]
  - FATIGUE [None]
  - PROTEIN URINE PRESENT [None]
  - DEHYDRATION [None]
  - ALANINE AMINOTRANSFERASE INCREASED [None]
  - BLOOD ALKALINE PHOSPHATASE INCREASED [None]
